FAERS Safety Report 11872227 (Version 4)
Quarter: 2016Q2

REPORT INFORMATION
  Report Type: Spontaneous
  Country: BR (occurrence: BR)
  Receive Date: 20151228
  Receipt Date: 20160428
  Transmission Date: 20160815
  Serious: Yes (Other)
  Sender: FDA-Public Use
  Company Number: BR-SA-2015SA216565

PATIENT
  Age: 54 Year
  Sex: Female
  Weight: 72.4 kg

DRUGS (8)
  1. KYTRIL [Concomitant]
     Active Substance: GRANISETRON HYDROCHLORIDE
     Dosage: 1 MG
     Route: 042
  2. POLARAMINE [Concomitant]
     Active Substance: DEXCHLORPHENIRAMINE MALEATE
     Dosage: 2 MG
     Route: 048
  3. DIFENIDRIN [Suspect]
     Active Substance: DIPHENHYDRAMINE
     Route: 065
  4. ANTAK [Concomitant]
     Active Substance: RANITIDINE HYDROCHLORIDE
     Dosage: 50 MG
     Route: 042
  5. TAXOTERE [Suspect]
     Active Substance: DOCETAXEL
     Route: 042
  6. DECADRON [Concomitant]
     Active Substance: DEXAMETHASONE
     Dosage: 20 MG
     Route: 042
  7. HYDROCORTISONE. [Suspect]
     Active Substance: HYDROCORTISONE
     Dosage: STRENGTH- 100MG
     Route: 065
  8. TAXOTERE [Suspect]
     Active Substance: DOCETAXEL
     Route: 042

REACTIONS (6)
  - Erythema [Unknown]
  - Restless legs syndrome [Unknown]
  - Chest discomfort [Unknown]
  - Flushing [Recovered/Resolved]
  - Chest pain [Recovered/Resolved]
  - Abdominal pain upper [Unknown]

NARRATIVE: CASE EVENT DATE: 20151127
